FAERS Safety Report 16347162 (Version 1)
Quarter: 2019Q2

REPORT INFORMATION
  Report Type: Spontaneous
  Country: US (occurrence: US)
  Receive Date: 20190417
  Receipt Date: 20190417
  Transmission Date: 20190711
  Serious: No
  Sender: FDA-Public Use
  Company Number: None

PATIENT
  Sex: Female

DRUGS (1)
  1. ENOXAPARIN SOD SYRINGE 60MG/0.6ML [Suspect]
     Active Substance: ENOXAPARIN
     Indication: BREAST CANCER FEMALE
     Route: 058

REACTIONS (1)
  - Therapy change [None]
